FAERS Safety Report 6270702-3 (Version None)
Quarter: 2009Q3

REPORT INFORMATION
  Report Type: 
  Country: None (occurrence: None)
  Receive Date: 20090716
  Receipt Date: 20090713
  Transmission Date: 20100115
  Serious: Yes (Hospitalization, Other)
  Sender: FDA-Public Use
  Company Number: US-TEVA-201727USA

PATIENT
  Age: 50 Year
  Sex: Female

DRUGS (6)
  1. LAMOTRIGINE [Suspect]
     Route: 048
  2. LITHIUM CARBONATE [Concomitant]
  3. DILTIAZEM [Concomitant]
  4. CLONAZEPAM [Concomitant]
  5. ZOLPIDEM [Concomitant]
  6. RISPERIDONE [Concomitant]

REACTIONS (1)
  - MENINGITIS ASEPTIC [None]
